FAERS Safety Report 14481527 (Version 1)
Quarter: 2018Q1

REPORT INFORMATION
  Report Type: Spontaneous
  Country: JP (occurrence: JP)
  Receive Date: 20180202
  Receipt Date: 20180202
  Transmission Date: 20180509
  Serious: Yes (Other)
  Sender: FDA-Public Use
  Company Number: JP-PFIZER INC-2018044240

PATIENT
  Age: 3 Year
  Sex: Male

DRUGS (2)
  1. HYDROCORTISONE SODIUM SUCCINATE [Suspect]
     Active Substance: HYDROCORTISONE SODIUM SUCCINATE
     Dosage: INCREASED DOSE
  2. HYDROCORTISONE SODIUM SUCCINATE [Suspect]
     Active Substance: HYDROCORTISONE SODIUM SUCCINATE
     Dosage: 5 MG/KG, 3X/DAY

REACTIONS (5)
  - Altered state of consciousness [Recovering/Resolving]
  - Atrioventricular dissociation [Recovering/Resolving]
  - Abnormal behaviour [Recovering/Resolving]
  - Drug hypersensitivity [Recovering/Resolving]
  - Bradycardia [Recovering/Resolving]
